APPROVED DRUG PRODUCT: TELMISARTAN
Active Ingredient: TELMISARTAN
Strength: 40MG
Dosage Form/Route: TABLET;ORAL
Application: A205150 | Product #002 | TE Code: AB
Applicant: INVENTIA HEALTHCARE LTD
Approved: Oct 30, 2015 | RLD: No | RS: No | Type: RX